FAERS Safety Report 25365598 (Version 2)
Quarter: 2025Q2

REPORT INFORMATION
  Report Type: Spontaneous
  Country: US (occurrence: US)
  Receive Date: 20250527
  Receipt Date: 20250604
  Transmission Date: 20250717
  Serious: No
  Sender: BIOGEN
  Company Number: US-BIOGEN-2025BI01311677

PATIENT
  Age: 26 Year
  Sex: Male

DRUGS (2)
  1. ZURZUVAE [Suspect]
     Active Substance: ZURANOLONE
     Indication: Neuropsychological symptoms
     Route: 050
  2. CLOZAPINE [Concomitant]
     Active Substance: CLOZAPINE
     Indication: Product used for unknown indication
     Route: 050

REACTIONS (2)
  - Psychomotor hyperactivity [Unknown]
  - Product use in unapproved indication [Unknown]
